FAERS Safety Report 13917456 (Version 1)
Quarter: 2017Q3

REPORT INFORMATION
  Report Type: Spontaneous
  Country: NO (occurrence: NO)
  Receive Date: 20170829
  Receipt Date: 20170829
  Transmission Date: 20171127
  Serious: Yes (Death, Hospitalization)
  Sender: FDA-Public Use
  Company Number: NO-PFIZER INC-2017370731

PATIENT
  Age: 82 Year
  Sex: Male

DRUGS (10)
  1. ZYVOXID [Suspect]
     Active Substance: LINEZOLID
     Indication: STAPHYLOCOCCUS TEST POSITIVE
  2. PARACET [Concomitant]
     Active Substance: ACETAMINOPHEN
  3. CIPROXIN [Concomitant]
     Active Substance: CIPROFLOXACIN
     Dosage: 750 MG, 2X/DAY
     Dates: start: 20170713
  4. KALEORID [Concomitant]
     Active Substance: POTASSIUM CHLORIDE
  5. DIFLUCAN [Concomitant]
     Active Substance: FLUCONAZOLE
     Indication: CANDIDA INFECTION
     Dosage: 400 MG, 1X/DAY
  6. ELIQUIS [Concomitant]
     Active Substance: APIXABAN
  7. FURIX [Concomitant]
     Active Substance: FUROSEMIDE
  8. ZYVOXID [Suspect]
     Active Substance: LINEZOLID
     Indication: HIP ARTHROPLASTY
     Dosage: 600 MG, 2X/DAY
     Dates: start: 20170713, end: 20170810
  9. ZYVOXID [Suspect]
     Active Substance: LINEZOLID
     Indication: ENTEROBACTER INFECTION
  10. TRIATEC [Concomitant]
     Active Substance: RAMIPRIL

REACTIONS (3)
  - Renal failure [Fatal]
  - Bone marrow failure [Fatal]
  - Hepatic failure [Fatal]

NARRATIVE: CASE EVENT DATE: 20170810
